FAERS Safety Report 16467827 (Version 1)
Quarter: 2019Q2

REPORT INFORMATION
  Report Type: Spontaneous
  Country: GB (occurrence: GB)
  Receive Date: 20190624
  Receipt Date: 20190624
  Transmission Date: 20190711
  Serious: Yes (Other)
  Sender: FDA-Public Use
  Company Number: GB-TEVA-2019-GB-1067145

PATIENT
  Sex: Male
  Weight: 48 kg

DRUGS (6)
  1. PHENYTOIN. [Concomitant]
     Active Substance: PHENYTOIN
  2. CLOBAZAM. [Concomitant]
     Active Substance: CLOBAZAM
  3. SODIUM VALPROATE [Suspect]
     Active Substance: VALPROATE SODIUM
     Route: 065
  4. LEVETIRACETAM. [Concomitant]
     Active Substance: LEVETIRACETAM
  5. OXCARBAZEPINE. [Concomitant]
     Active Substance: OXCARBAZEPINE
  6. MEROPENEM. [Interacting]
     Active Substance: MEROPENEM
     Dosage: 3 GRAM DAILY;
     Route: 042

REACTIONS (2)
  - Labelled drug-drug interaction medication error [Unknown]
  - Epilepsy [Recovered/Resolved]
